FAERS Safety Report 5586309-7 (Version None)
Quarter: 2008Q1

REPORT INFORMATION
  Report Type: 
  Country: None (occurrence: None)
  Receive Date: 20080107
  Receipt Date: 20080107
  Transmission Date: 20080703
  Serious: Yes (Hospitalization)
  Sender: FDA-Public Use
  Company Number: None

PATIENT
  Age: 54 Year
  Sex: Female
  Weight: 80.7403 kg

DRUGS (1)
  1. HEPARIN LOCK-FLUSH [Suspect]

REACTIONS (2)
  - SERRATIA INFECTION [None]
  - STENOTROPHOMONAS INFECTION [None]
